FAERS Safety Report 7627819-8 (Version None)
Quarter: 2011Q3

REPORT INFORMATION
  Report Type: 
  Country: None (occurrence: None)
  Receive Date: 20110721
  Receipt Date: 20110711
  Transmission Date: 20111222
  Serious: Yes (Hospitalization)
  Sender: FDA-Public Use
  Company Number: US-BAXTER-2011BH020345

PATIENT
  Age: 61 Year
  Sex: Male

DRUGS (2)
  1. DIANEAL [Suspect]
     Indication: PERITONEAL DIALYSIS
     Route: 033
     Dates: end: 20110615
  2. EXTRANEAL [Suspect]
     Indication: PERITONEAL DIALYSIS
     Route: 033
     Dates: end: 20110615

REACTIONS (7)
  - TREATMENT NONCOMPLIANCE [None]
  - SEPSIS [None]
  - PERITONEAL DIALYSIS COMPLICATION [None]
  - REFUSAL OF TREATMENT BY PATIENT [None]
  - CANDIDA TEST POSITIVE [None]
  - FUNGAL PERITONITIS [None]
  - WRONG TECHNIQUE IN DRUG USAGE PROCESS [None]
